FAERS Safety Report 4787394-2 (Version None)
Quarter: 2005Q4

REPORT INFORMATION
  Report Type: 
  Country: None (occurrence: None)
  Receive Date: 20051003
  Receipt Date: 20050922
  Transmission Date: 20060501
  Serious: Yes (Hospitalization, Other)
  Sender: FDA-Public Use
  Company Number: 2005133426

PATIENT
  Sex: Male

DRUGS (4)
  1. SOMATROPIN (SOMATROPIN) [Suspect]
     Indication: GROWTH RETARDATION
  2. PREDNISONE [Concomitant]
  3. AZATHIOPRINE [Concomitant]
  4. CYCLOSPORINE [Concomitant]

REACTIONS (4)
  - COMPLICATIONS OF TRANSPLANTED KIDNEY [None]
  - HAEMODIALYSIS [None]
  - LEIOMYOMA [None]
  - URINARY TRACT INFECTION [None]
